FAERS Safety Report 7234572-9 (Version None)
Quarter: 2011Q1

REPORT INFORMATION
  Report Type: 
  Country: None (occurrence: None)
  Receive Date: 20110120
  Receipt Date: 20110110
  Transmission Date: 20110831
  Serious: Yes (Hospitalization, Other)
  Sender: FDA-Public Use
  Company Number: JP-AMGEN-JPNSP2011002525

PATIENT

DRUGS (3)
  1. ETANERCEPT [Suspect]
     Indication: RHEUMATOID ARTHRITIS
     Dosage: 25 MG, 2X/WEEK
     Dates: start: 20070201, end: 20080901
  2. ALLOPURINOL [Concomitant]
     Dosage: 50 MG, 1X/DAY
  3. AMLODIPINE BESYLATE [Concomitant]
     Dosage: 5 MG, 1X/DAY

REACTIONS (2)
  - GLOMERULONEPHRITIS MEMBRANOUS [None]
  - GLOMERULONEPHRITIS RAPIDLY PROGRESSIVE [None]
